APPROVED DRUG PRODUCT: CYCLOPHOSPHAMIDE
Active Ingredient: CYCLOPHOSPHAMIDE
Strength: 500MG/2.5ML (200MG/ML)
Dosage Form/Route: SOLUTION;INTRAVENOUS
Application: N210735 | Product #001
Applicant: EUGIA PHARMA SPECIALITIES LTD
Approved: Aug 25, 2021 | RLD: Yes | RS: Yes | Type: RX

PATENTS:
Patent 9662342 | Expires: Jun 26, 2035